FAERS Safety Report 18494325 (Version 1)
Quarter: 2020Q4

REPORT INFORMATION
  Report Type: Spontaneous
  Country: DE (occurrence: DE)
  Receive Date: 20201112
  Receipt Date: 20201112
  Transmission Date: 20210114
  Serious: Yes (Hospitalization, Other)
  Sender: FDA-Public Use
  Company Number: DE-HIKMA PHARMACEUTICALS USA INC.-DE-H14001-20-52555

PATIENT
  Age: 86 Year
  Sex: Male

DRUGS (2)
  1. CIPROFLOXACIN. [Suspect]
     Active Substance: CIPROFLOXACIN
     Indication: PRODUCT USED FOR UNKNOWN INDICATION
     Dosage: UNKNOWN
     Route: 065
  2. LEVETIRACETAM. [Suspect]
     Active Substance: LEVETIRACETAM
     Indication: PRODUCT USED FOR UNKNOWN INDICATION
     Dosage: 2X1
     Route: 065
     Dates: start: 20201007

REACTIONS (5)
  - Erythema [Unknown]
  - Drug eruption [Unknown]
  - Drug reaction with eosinophilia and systemic symptoms [Unknown]
  - Body temperature increased [Unknown]
  - Eosinophilia [Unknown]

NARRATIVE: CASE EVENT DATE: 202010
